FAERS Safety Report 10778482 (Version 1)
Quarter: 2015Q1

REPORT INFORMATION
  Report Type: Spontaneous
  Country: IT (occurrence: IT)
  Receive Date: 20150210
  Receipt Date: 20150210
  Transmission Date: 20150721
  Serious: Yes (Hospitalization)
  Sender: FDA-Public Use
  Company Number: PHHY2015IT014458

PATIENT
  Sex: Female

DRUGS (2)
  1. DELORAZEPAM [Suspect]
     Active Substance: DELORAZEPAM
     Indication: DRUG DEPENDENCE
     Dosage: 10 MG, QD
     Route: 048
     Dates: start: 20130727, end: 20140227
  2. CLONAZEPAM. [Suspect]
     Active Substance: CLONAZEPAM
     Indication: DRUG DEPENDENCE
     Dosage: 10 MG, QD
     Route: 048
     Dates: start: 20130727, end: 20140227

REACTIONS (1)
  - Drug dependence [Recovering/Resolving]

NARRATIVE: CASE EVENT DATE: 20140227
